FAERS Safety Report 18300420 (Version 1)
Quarter: 2020Q3

REPORT INFORMATION
  Report Type: Spontaneous
  Country: US (occurrence: US)
  Receive Date: 20200923
  Receipt Date: 20200923
  Transmission Date: 20201103
  Serious: No
  Sender: FDA-Public Use
  Company Number: None

PATIENT
  Age: 71 Year
  Sex: Male
  Weight: 80.29 kg

DRUGS (1)
  1. BACITRACIN /NEOMYCIN/POLYMYXIN B (BACITRACIN/NEOMYCIN/POLYMYXIN B SO4 [Suspect]
     Active Substance: BACITRACIN\NEOMYCIN\POLYMYXIN B SULFATE
     Dates: end: 20200617

REACTIONS (2)
  - Rash [None]
  - Paradoxical drug reaction [None]

NARRATIVE: CASE EVENT DATE: 20200617
